FAERS Safety Report 15302700 (Version 1)
Quarter: 2018Q3

REPORT INFORMATION
  Report Type: Spontaneous
  Country: US (occurrence: US)
  Receive Date: 20180821
  Receipt Date: 20180821
  Transmission Date: 20181010
  Serious: Yes (Other)
  Sender: FDA-Public Use
  Company Number: US-BAYER-2018-152745

PATIENT
  Age: 20 Year
  Sex: Female

DRUGS (1)
  1. MIRENA [Suspect]
     Active Substance: LEVONORGESTREL
     Indication: CONTRACEPTION
     Dosage: 20 MCG/24HR, CONT
     Route: 015
     Dates: start: 201705

REACTIONS (9)
  - Mood swings [None]
  - Pain [None]
  - Nausea [None]
  - Abortion spontaneous [None]
  - Weight increased [None]
  - Abdominal pain lower [None]
  - Amenorrhoea [None]
  - Pregnancy with contraceptive device [None]
  - Food craving [None]

NARRATIVE: CASE EVENT DATE: 201706
